FAERS Safety Report 4615959-7 (Version None)
Quarter: 2005Q1

REPORT INFORMATION
  Report Type: 
  Country: None (occurrence: None)
  Receive Date: 20050318
  Receipt Date: 20050307
  Transmission Date: 20050727
  Serious: Yes (Other)
  Sender: FDA-Public Use
  Company Number: 200510097BNE

PATIENT
  Age: 58 Year
  Sex: Female

DRUGS (1)
  1. CANESTEN COMBI  (CLOTRIMAZOLE) [Suspect]
     Indication: CANDIDIASIS
     Dosage: VAGINAL
     Route: 067
     Dates: start: 20050204

REACTIONS (7)
  - BURNING SENSATION [None]
  - CANDIDIASIS [None]
  - CONDITION AGGRAVATED [None]
  - DRUG INEFFECTIVE [None]
  - PAIN [None]
  - URINARY TRACT DISORDER [None]
  - VULVOVAGINAL DISCOMFORT [None]
